FAERS Safety Report 26132496 (Version 2)
Quarter: 2025Q4

REPORT INFORMATION
  Report Type: Spontaneous
  Country: JP (occurrence: JP)
  Receive Date: 20251208
  Receipt Date: 20251223
  Transmission Date: 20260117
  Serious: Yes (Hospitalization, Other)
  Sender: ELI LILLY AND COMPANY
  Company Number: JP-ELI_LILLY_AND_COMPANY-JP202512000029

PATIENT
  Age: 75 Year
  Sex: Female

DRUGS (2)
  1. VERZENIO [Suspect]
     Active Substance: ABEMACICLIB
     Indication: Breast cancer recurrent
     Route: 048
  2. ANASTROZOLE [Concomitant]
     Active Substance: ANASTROZOLE
     Indication: Breast cancer recurrent

REACTIONS (5)
  - Chilaiditi^s syndrome [Unknown]
  - Hepatic encephalopathy [Recovering/Resolving]
  - Hepatic failure [Recovered/Resolved]
  - Hepatic atrophy [Unknown]
  - Drug-induced liver injury [Recovered/Resolved]
